FAERS Safety Report 5807364-2 (Version None)
Quarter: 2008Q3

REPORT INFORMATION
  Report Type: 
  Country: None (occurrence: None)
  Receive Date: 20080711
  Receipt Date: 20080704
  Transmission Date: 20090109
  Serious: Yes (Death)
  Sender: FDA-Public Use
  Company Number: GB-TEVA-165973ISR

PATIENT
  Age: 52 Year
  Sex: Male
  Weight: 90 kg

DRUGS (1)
  1. SIMVASTATIN [Suspect]
     Indication: BLOOD CHOLESTEROL INCREASED
     Route: 048
     Dates: start: 20070401

REACTIONS (6)
  - ABNORMAL DREAMS [None]
  - AMNESIA [None]
  - COMPLETED SUICIDE [None]
  - MENTAL DISORDER [None]
  - MULTIPLE INJURIES [None]
  - NIGHTMARE [None]
